FAERS Safety Report 12655020 (Version 1)
Quarter: 2016Q3

REPORT INFORMATION
  Report Type: Spontaneous
  Country: US (occurrence: US)
  Receive Date: 20160816
  Receipt Date: 20160816
  Transmission Date: 20161109
  Serious: No
  Sender: FDA-Public Use
  Company Number: GXBR2016US000442

PATIENT
  Age: 43 Year
  Sex: Female
  Weight: 77.98 kg

DRUGS (1)
  1. FLUOXETINE [Suspect]
     Active Substance: FLUOXETINE HYDROCHLORIDE
     Indication: HORMONE LEVEL ABNORMAL
     Dosage: 40 MG, QAM
     Route: 048
     Dates: start: 20151229, end: 20160102

REACTIONS (9)
  - Diarrhoea [Not Recovered/Not Resolved]
  - Thirst [Recovering/Resolving]
  - Abdominal pain upper [Recovering/Resolving]
  - Headache [Recovering/Resolving]
  - Pain [Recovering/Resolving]
  - Feeling cold [Recovering/Resolving]
  - Night sweats [Recovering/Resolving]
  - Dysgeusia [Recovering/Resolving]
  - Hypersensitivity [Recovering/Resolving]

NARRATIVE: CASE EVENT DATE: 20151230
